FAERS Safety Report 6365941-7 (Version None)
Quarter: 2009Q3

REPORT INFORMATION
  Report Type: 
  Country: None (occurrence: None)
  Receive Date: 20090919
  Receipt Date: 20090828
  Transmission Date: 20100115
  Serious: No
  Sender: FDA-Public Use
  Company Number: US-ABBOTT-09P-163-0594155-00

PATIENT
  Sex: Female
  Weight: 56.75 kg

DRUGS (6)
  1. HUMIRA [Suspect]
     Indication: CROHN'S DISEASE
     Dates: start: 20090731, end: 20090731
  2. HUMIRA [Suspect]
     Dates: start: 20090814, end: 20090814
  3. HUMIRA [Suspect]
     Dates: start: 20090828
  4. PENTASA [Concomitant]
     Indication: CROHN'S DISEASE
  5. XANAX [Concomitant]
     Indication: ANXIETY
  6. PRILOSEC [Concomitant]
     Indication: GASTROOESOPHAGEAL REFLUX DISEASE

REACTIONS (6)
  - HEADACHE [None]
  - INFLUENZA LIKE ILLNESS [None]
  - INJECTION SITE IRRITATION [None]
  - INJECTION SITE NODULE [None]
  - NAUSEA [None]
  - PAIN [None]
